FAERS Safety Report 7628908 (Version 5)
Quarter: 2015Q1

REPORT INFORMATION
  Report Type: Report from Study
  Country: TW (occurrence: TW)
  Receive Date: 20101014
  Receipt Date: 20150102
  Transmission Date: 20150721
  Serious: Yes (Hospitalization)
  Sender: FDA-Public Use
  Company Number: PHHY2010TW64908

PATIENT
  Age: 50 Year
  Sex: Male
  Weight: 82 kg

DRUGS (3)
  1. SANDIMMUNE [Concomitant]
     Active Substance: CYCLOSPORINE
     Dosage: 150 MG, QD
     Dates: start: 20101007, end: 20101214
  2. SANDIMMUNE [Concomitant]
     Active Substance: CYCLOSPORINE
     Indication: APLASTIC ANAEMIA
     Dosage: 200 MG, QD
     Dates: start: 20100901, end: 20100927
  3. ICL670A [Suspect]
     Active Substance: DEFERASIROX
     Indication: IRON OVERLOAD
     Dosage: 1875 MG, QD
     Route: 048
     Dates: start: 20100906, end: 20100927

REACTIONS (10)
  - Blood creatinine increased [Unknown]
  - Aspartate aminotransferase increased [Unknown]
  - Eye swelling [Recovered/Resolved]
  - Renal impairment [Recovered/Resolved]
  - Pyrexia [Unknown]
  - Acute kidney injury [Recovered/Resolved]
  - Alanine aminotransferase increased [Unknown]
  - Periorbital cellulitis [Recovered/Resolved]
  - Hepatic function abnormal [Recovered/Resolved]
  - Vomiting [Recovered/Resolved]

NARRATIVE: CASE EVENT DATE: 20100927
